FAERS Safety Report 9216090 (Version 3)
Quarter: 2014Q1

REPORT INFORMATION
  Report Type: Spontaneous
  Country: FR (occurrence: None)
  Receive Date: 20130404
  Receipt Date: 20140116
  Transmission Date: 20141002
  Serious: Yes (Hospitalization)
  Sender: FDA-Public Use
  Company Number: 2013FR001401

PATIENT
  Age: 67 Year
  Sex: Female
  Weight: 67 kg

DRUGS (7)
  1. PONATINIB [Suspect]
     Indication: CHRONIC MYELOID LEUKAEMIA
     Route: 048
     Dates: start: 20110623
  2. CARDENSIEL [Concomitant]
  3. LASIX (FUROSEMIDE) [Concomitant]
  4. NOCTAMIDE (LORMETAZEPAM) (TABLET EXTENDED RELEASE) (LORMETAZEPAM) [Concomitant]
  5. EPITOMAX (TOPIRAMATE) [Concomitant]
  6. DEROXAT (PAROXETINE HYDROCHLORIDE) [Concomitant]
  7. XEROQUEL (QUETIAPINE FUMARATE) [Concomitant]

REACTIONS (13)
  - Peripheral ischaemia [None]
  - Atrial fibrillation [None]
  - Supraventricular extrasystoles [None]
  - Peripheral artery thrombosis [None]
  - Blister [None]
  - Heparin-induced thrombocytopenia [None]
  - Arrhythmia [None]
  - Peripheral artery stenosis [None]
  - Peripheral arterial occlusive disease [None]
  - Extremity necrosis [None]
  - Procedural pain [None]
  - Peripheral arterial occlusive disease [None]
  - Coronary artery embolism [None]
